FAERS Safety Report 11720281 (Version 2)
Quarter: 2015Q4

REPORT INFORMATION
  Report Type: Spontaneous
  Country: GB (occurrence: AU)
  Receive Date: 20151110
  Receipt Date: 20151120
  Transmission Date: 20160304
  Serious: Yes (Other)
  Sender: FDA-Public Use
  Company Number: GB-TEVA-606503ACC

PATIENT
  Age: 22 Year
  Sex: Male
  Weight: 80 kg

DRUGS (6)
  1. VECURONIUM [Suspect]
     Active Substance: VECURONIUM BROMIDE
     Route: 065
  2. FENTANYL. [Suspect]
     Active Substance: FENTANYL
     Route: 065
  3. TORADOL [Suspect]
     Active Substance: KETOROLAC TROMETHAMINE
     Indication: PROCEDURAL PAIN
     Dosage: 30 MG (DAILY DOSE), , INTRAMUSCULAR
     Route: 030
     Dates: start: 19930809, end: 19930809
  4. PANADEINE FORTE [Suspect]
     Active Substance: ACETAMINOPHEN\CODEINE PHOSPHATE
     Route: 065
  5. PROPOFOL. [Suspect]
     Active Substance: PROPOFOL
     Route: 065
  6. OXYCODONE [Suspect]
     Active Substance: OXYCODONE
     Route: 065

REACTIONS (12)
  - Myalgia [Unknown]
  - Blood creatine phosphokinase increased [Recovering/Resolving]
  - Back pain [Unknown]
  - Weight decreased [Unknown]
  - Chromaturia [Unknown]
  - Pyrexia [Unknown]
  - Muscular weakness [Unknown]
  - Nausea [Unknown]
  - Asthenia [Unknown]
  - Rhabdomyolysis [Recovering/Resolving]
  - Blood creatinine increased [Unknown]
  - Chills [Unknown]

NARRATIVE: CASE EVENT DATE: 19930811
